FAERS Safety Report 9288803 (Version 2)
Quarter: 2013Q4

REPORT INFORMATION
  Report Type: Report from Study
  Country: FR (occurrence: FR)
  Receive Date: 20130514
  Receipt Date: 20131114
  Transmission Date: 20140711
  Serious: Yes (Death, Hospitalization)
  Sender: FDA-Public Use
  Company Number: FR-CELGENEUS-056-21880-13023984

PATIENT
  Age: 80 Year
  Sex: Male
  Weight: 103 kg

DRUGS (22)
  1. REVLIMID [Suspect]
     Indication: PLASMA CELL MYELOMA
     Dosage: 15 MILLIGRAM
     Route: 048
     Dates: start: 20111017, end: 20111106
  2. REVLIMID [Suspect]
     Dosage: 15 MILLIGRAM
     Route: 048
     Dates: start: 20120726, end: 20120815
  3. REVLIMID [Suspect]
     Dosage: 15 MILLIGRAM
     Route: 048
     Dates: start: 20130110, end: 20130130
  4. CYCLOPHOSPHAMIDE [Suspect]
     Indication: PLASMA CELL MYELOMA
     Dosage: 500 MILLIGRAM
     Route: 048
     Dates: start: 20111017
  5. CYCLOPHOSPHAMIDE [Suspect]
     Dosage: 500 MILLIGRAM
     Route: 041
     Dates: start: 20111220, end: 20111220
  6. CYCLOPHOSPHAMIDE [Suspect]
     Route: 048
     Dates: start: 20120823, end: 20120912
  7. CYCLOPHOSPHAMIDE [Suspect]
     Route: 048
     Dates: start: 20130110, end: 20130130
  8. DEXAMETHASONE [Suspect]
     Indication: PLASMA CELL MYELOMA
     Dosage: 80 MILLIGRAM
     Route: 048
     Dates: start: 20111017, end: 20111106
  9. DEXAMETHASONE [Suspect]
     Dosage: 60 MILLIGRAM
     Route: 048
     Dates: start: 20111118, end: 20111208
  10. DEXAMETHASONE [Suspect]
     Dosage: 80 MILLIGRAM
     Route: 048
     Dates: start: 20110820, end: 20120109
  11. DEXAMETHASONE [Suspect]
     Dosage: 40 MILLIGRAM
     Route: 048
     Dates: start: 20120319, end: 20120330
  12. DEXAMETHASONE [Suspect]
     Route: 065
     Dates: end: 20120521
  13. SKENAN [Concomitant]
     Indication: PAIN
     Dosage: 60 MILLIGRAM
     Route: 065
  14. SKENAN [Concomitant]
     Route: 065
  15. LYRICA [Concomitant]
     Indication: PRODUCT USED FOR UNKNOWN INDICATION
     Route: 065
  16. ZELITREX [Concomitant]
     Indication: PRODUCT USED FOR UNKNOWN INDICATION
     Route: 065
  17. CO-APROVEL [Concomitant]
     Indication: PRODUCT USED FOR UNKNOWN INDICATION
     Dosage: 300/25
     Route: 065
  18. CORDARONE [Concomitant]
     Indication: PRODUCT USED FOR UNKNOWN INDICATION
     Route: 065
  19. COUMADINE [Concomitant]
     Indication: PRODUCT USED FOR UNKNOWN INDICATION
     Route: 065
  20. INEXIUM [Concomitant]
     Indication: PRODUCT USED FOR UNKNOWN INDICATION
     Dosage: 40 MILLIGRAM
     Route: 065
  21. PERMIXON [Concomitant]
     Indication: PRODUCT USED FOR UNKNOWN INDICATION
     Route: 065
  22. ASPIRINE [Concomitant]
     Indication: THROMBOSIS PROPHYLAXIS
     Dosage: 100 MILLIGRAM
     Route: 065

REACTIONS (2)
  - Plasma cell myeloma [Fatal]
  - Spinal cord compression [Unknown]
